FAERS Safety Report 5492196-8 (Version None)
Quarter: 2007Q4

REPORT INFORMATION
  Report Type: 
  Country: None (occurrence: None)
  Receive Date: 20071022
  Receipt Date: 20071001
  Transmission Date: 20080405
  Serious: Yes (Other)
  Sender: FDA-Public Use
  Company Number: AT-JNJFOC-20071000351

PATIENT
  Age: 29 Year
  Sex: Male

DRUGS (12)
  1. HALDOL [Suspect]
     Indication: SCHIZOPHRENIA, PARANOID TYPE
     Route: 048
  2. QUILONORM [Suspect]
     Indication: DRUG USE FOR UNKNOWN INDICATION
     Route: 048
  3. LEPONEX [Suspect]
     Route: 048
  4. LEPONEX [Suspect]
     Route: 048
  5. LEPONEX [Suspect]
     Indication: DRUG USE FOR UNKNOWN INDICATION
     Route: 048
  6. ABILIFY [Suspect]
     Route: 048
  7. ABILIFY [Suspect]
     Route: 048
  8. ABILIFY [Suspect]
     Route: 048
  9. ABILIFY [Suspect]
     Route: 048
  10. ABILIFY [Suspect]
     Indication: DRUG USE FOR UNKNOWN INDICATION
     Route: 048
  11. GASTROZEPIN [Concomitant]
     Route: 048
  12. OXAZEPAM [Concomitant]
     Indication: DRUG USE FOR UNKNOWN INDICATION
     Route: 048

REACTIONS (2)
  - DYSKINESIA [None]
  - EPILEPSY [None]
